FAERS Safety Report 8365942-3 (Version None)
Quarter: 2012Q2

REPORT INFORMATION
  Report Type: 
  Country: None (occurrence: None)
  Receive Date: 20120517
  Receipt Date: 20120510
  Transmission Date: 20120825
  Serious: Yes (Hospitalization, Other)
  Sender: FDA-Public Use
  Company Number: US-PFIZER INC-2012045388

PATIENT
  Sex: Female

DRUGS (2)
  1. CHANTIX [Suspect]
     Indication: SMOKING CESSATION THERAPY
     Dosage: 0.5MG TO 1.0 MG PER DAY
     Dates: start: 20080307, end: 20080727
  2. XANAX [Concomitant]
     Indication: ANXIETY
     Dosage: UNK
     Dates: start: 19990101, end: 20090101

REACTIONS (3)
  - SUICIDE ATTEMPT [None]
  - INTENTIONAL OVERDOSE [None]
  - ANXIETY [None]
